FAERS Safety Report 15677564 (Version 2)
Quarter: 2018Q4

REPORT INFORMATION
  Report Type: Spontaneous
  Country: US (occurrence: US)
  Receive Date: 20181130
  Receipt Date: 20181206
  Transmission Date: 20190205
  Serious: Yes (Death)
  Sender: FDA-Public Use
  Company Number: US-VIFOR (INTERNATIONAL) INC.-VIT-2018-11850

PATIENT
  Age: 76 Year
  Sex: Male

DRUGS (18)
  1. VELTASSA [Suspect]
     Active Substance: PATIROMER
     Dates: start: 20180508
  2. LIPITOR [Concomitant]
     Active Substance: ATORVASTATIN CALCIUM
  3. SENSIPAR [Concomitant]
     Active Substance: CINACALCET HYDROCHLORIDE
  4. TOPROL XL [Concomitant]
     Active Substance: METOPROLOL SUCCINATE
  5. VELTASSA [Suspect]
     Active Substance: PATIROMER
     Indication: HYPERKALAEMIA
     Dates: start: 20171010, end: 201805
  6. PHOSLO [Concomitant]
     Active Substance: CALCIUM ACETATE
  7. PROTONIX [Concomitant]
     Active Substance: PANTOPRAZOLE SODIUM
  8. ASPIRIN. [Concomitant]
     Active Substance: ASPIRIN
  9. IMDUR [Concomitant]
     Active Substance: ISOSORBIDE MONONITRATE
  10. NASAL SPRAY [Concomitant]
     Active Substance: UNSPECIFIED INGREDIENT
  11. NITROSTAT [Concomitant]
     Active Substance: NITROGLYCERIN
  12. TYLENOL [Concomitant]
     Active Substance: ACETAMINOPHEN
  13. NEPHROCAPS [Concomitant]
     Active Substance: ASCORBIC ACID\BIOTIN\CYANOCOBALAMIN\FOLIC ACID\NIACIN\PANTOTHENIC ACID\PYRIDOXINE\RIBOFLAVIN\THIAMINE
  14. NASONEX [Concomitant]
     Active Substance: MOMETASONE FUROATE
  15. PLAVIX [Concomitant]
     Active Substance: CLOPIDOGREL BISULFATE
  16. LISINOPRIL. [Concomitant]
     Active Substance: LISINOPRIL
  17. FENOFIBRATE. [Concomitant]
     Active Substance: FENOFIBRATE
  18. NOVOLOG [Concomitant]
     Active Substance: INSULIN ASPART

REACTIONS (2)
  - Localised infection [Fatal]
  - Poor peripheral circulation [Unknown]

NARRATIVE: CASE EVENT DATE: 2018
